FAERS Safety Report 9722024 (Version 1)
Quarter: 2013Q4

REPORT INFORMATION
  Report Type: Report from Study
  Country: US (occurrence: US)
  Receive Date: 20131202
  Receipt Date: 20131202
  Transmission Date: 20140711
  Serious: Yes (Death, Other)
  Sender: FDA-Public Use
  Company Number: US-ALEXION PHARMACEUTICALS INC.-A200901172

PATIENT
  Age: 71 Year
  Sex: Male

DRUGS (1)
  1. SOLIRIS [Suspect]
     Indication: PAROXYSMAL NOCTURNAL HAEMOGLOBINURIA
     Dosage: UNK
     Route: 042

REACTIONS (8)
  - Death [Fatal]
  - Myelofibrosis [Unknown]
  - Splenomegaly [Unknown]
  - Transfusion [Unknown]
  - Fatigue [Unknown]
  - Arthralgia [Unknown]
  - Drug ineffective [Unknown]
  - Asthenia [Unknown]
